FAERS Safety Report 7283440-5 (Version None)
Quarter: 2011Q1

REPORT INFORMATION
  Report Type: 
  Country: None (occurrence: None)
  Receive Date: 20110125
  Receipt Date: 20110111
  Transmission Date: 20110831
  Serious: No
  Sender: FDA-Public Use
  Company Number: 2011010013

PATIENT
  Age: 47 Year
  Sex: Female

DRUGS (3)
  1. DURAGESIC-100 [Concomitant]
  2. ONSOLIS [Suspect]
     Indication: CANCER PAIN
     Dosage: TITRATE UP TO 4-200 MCG FILMS/DOSE (UP TO 4 TIMES DAILY), BU
     Route: 002
  3. DILAUDID [Concomitant]

REACTIONS (1)
  - WRONG TECHNIQUE IN DRUG USAGE PROCESS [None]
